FAERS Safety Report 19172144 (Version 1)
Quarter: 2021Q2

REPORT INFORMATION
  Report Type: Spontaneous
  Country: US (occurrence: US)
  Receive Date: 20210422
  Receipt Date: 20210422
  Transmission Date: 20210717
  Serious: Yes (Other)
  Sender: FDA-Public Use
  Company Number: None

PATIENT
  Age: 43 Year
  Sex: Female
  Weight: 53.52 kg

DRUGS (3)
  1. GIANVI [Suspect]
     Active Substance: DROSPIRENONE\ETHINYL ESTRADIOL
  2. LORYNA [Suspect]
     Active Substance: DROSPIRENONE\ETHINYL ESTRADIOL
  3. KARIVA [Suspect]
     Active Substance: DESOGESTREL\ETHINYL ESTRADIOL

REACTIONS (2)
  - Intermenstrual bleeding [None]
  - Migraine [None]

NARRATIVE: CASE EVENT DATE: 20210204
